FAERS Safety Report 21584827 (Version 1)
Quarter: 2022Q4

REPORT INFORMATION
  Report Type: Spontaneous
  Country: CN (occurrence: CN)
  Receive Date: 20221111
  Receipt Date: 20221111
  Transmission Date: 20230113
  Serious: Yes (Life-Threatening, Hospitalization, Other)
  Sender: FDA-Public Use
  Company Number: CN-PFIZER INC-PV202200100519

PATIENT
  Age: 15 Year
  Sex: Female
  Weight: 62 kg

DRUGS (2)
  1. METHOTREXATE SODIUM [Suspect]
     Active Substance: METHOTREXATE SODIUM
     Indication: Chemotherapy
     Dosage: 13 G, 1X/DAY
     Route: 042
     Dates: start: 20221013, end: 20221013
  2. VINCRISTINE SULFATE [Concomitant]
     Active Substance: VINCRISTINE SULFATE
     Indication: Chemotherapy
     Dosage: 2 MG, 1X/DAY
     Route: 042
     Dates: start: 20221013, end: 20221013

REACTIONS (20)
  - Myelosuppression [Recovering/Resolving]
  - Vision blurred [Recovering/Resolving]
  - Abdominal pain [Recovering/Resolving]
  - Vomiting [Recovering/Resolving]
  - Rash [Recovering/Resolving]
  - Stomatitis [Recovering/Resolving]
  - Transaminases increased [Recovering/Resolving]
  - Oropharyngeal pain [Recovering/Resolving]
  - Eating disorder [Recovering/Resolving]
  - Mouth ulceration [Recovering/Resolving]
  - Extravasation blood [Recovering/Resolving]
  - Erythema [Recovering/Resolving]
  - Pruritus [Recovering/Resolving]
  - Perineal ulceration [Recovering/Resolving]
  - Perineal infection [Recovering/Resolving]
  - Platelet count decreased [Recovering/Resolving]
  - Anxiety [Recovering/Resolving]
  - Drug level increased [Recovering/Resolving]
  - Blood lactate dehydrogenase increased [Recovering/Resolving]
  - Total bile acids increased [Recovering/Resolving]

NARRATIVE: CASE EVENT DATE: 20221013
